FAERS Safety Report 12182790 (Version 1)
Quarter: 2016Q1

REPORT INFORMATION
  Report Type: Report from Study
  Country: BR (occurrence: BR)
  Receive Date: 20160316
  Receipt Date: 20160316
  Transmission Date: 20160526
  Serious: Yes (Hospitalization)
  Sender: FDA-Public Use
  Company Number: BR-ROCHE-1726600

PATIENT
  Sex: Female
  Weight: 51.4 kg

DRUGS (5)
  1. ATACAND [Concomitant]
     Active Substance: CANDESARTAN CILEXETIL
     Dosage: 1 TABLET OR 1/2 TABLET DAILY
     Route: 048
  2. ATACAND [Concomitant]
     Active Substance: CANDESARTAN CILEXETIL
     Route: 048
  3. MABTHERA [Suspect]
     Active Substance: RITUXIMAB
     Indication: RHEUMATOID ARTHRITIS
     Route: 042
     Dates: start: 20160223
  4. OMEPRAZOLE. [Concomitant]
     Active Substance: OMEPRAZOLE
     Dosage: 2 TABLET IN THE MORNING AND 1 TABLET AT NIGHT
     Route: 065
  5. CLONAZEPAM. [Concomitant]
     Active Substance: CLONAZEPAM
     Dosage: 1/2 TABLET BEFORE SLEEPING
     Route: 065

REACTIONS (6)
  - Fall [Unknown]
  - Asthenia [Not Recovered/Not Resolved]
  - Hernia [Not Recovered/Not Resolved]
  - Hand fracture [Not Recovered/Not Resolved]
  - Balance disorder [Unknown]
  - Malaise [Unknown]
